FAERS Safety Report 25764328 (Version 1)
Quarter: 2025Q3

REPORT INFORMATION
  Report Type: Spontaneous
  Country: US (occurrence: US)
  Receive Date: 20250905
  Receipt Date: 20250905
  Transmission Date: 20251021
  Serious: No
  Sender: DOMPE FARMACEUTICI
  Company Number: US-FARMAPROD-202501-0275

PATIENT
  Age: 58 Year
  Sex: Female
  Weight: 70.31 kg

DRUGS (1)
  1. OXERVATE [Suspect]
     Active Substance: CENEGERMIN-BKBJ
     Indication: Neurotrophic keratopathy
     Route: 047
     Dates: start: 20250125

REACTIONS (10)
  - Eye pain [Not Recovered/Not Resolved]
  - Headache [Unknown]
  - Rhinalgia [Unknown]
  - Oropharyngeal pain [Unknown]
  - Ocular hyperaemia [Unknown]
  - Vision blurred [Recovering/Resolving]
  - Eye swelling [Unknown]
  - Sinus disorder [Unknown]
  - Eye irritation [Unknown]
  - Ocular discomfort [Unknown]

NARRATIVE: CASE EVENT DATE: 20250125
